FAERS Safety Report 19603801 (Version 3)
Quarter: 2021Q3

REPORT INFORMATION
  Report Type: Spontaneous
  Country: US (occurrence: US)
  Receive Date: 20210723
  Receipt Date: 20210908
  Transmission Date: 20211014
  Serious: Yes (Other)
  Sender: FDA-Public Use
  Company Number: US-PFIZER INC-2021868748

PATIENT
  Age: 44 Year
  Sex: Female
  Weight: 58.97 kg

DRUGS (1)
  1. GENOTROPIN [Suspect]
     Active Substance: SOMATROPIN
     Indication: GROWTH HORMONE DEFICIENCY
     Dosage: 0.2 MG, ONCE A DAY (AT NIGHT)

REACTIONS (7)
  - Seizure [Unknown]
  - Device malfunction [Unknown]
  - Device leakage [Unknown]
  - Incorrect dose administered by device [Unknown]
  - Illness [Unknown]
  - Device difficult to use [Unknown]
  - Poor quality device used [Unknown]

NARRATIVE: CASE EVENT DATE: 20210708
